FAERS Safety Report 7293056-2 (Version None)
Quarter: 2011Q1

REPORT INFORMATION
  Report Type: 
  Country: None (occurrence: None)
  Receive Date: 20110215
  Receipt Date: 20110209
  Transmission Date: 20110831
  Serious: Yes (Other)
  Sender: FDA-Public Use
  Company Number: PL-ROCHE-744423

PATIENT
  Sex: Male

DRUGS (4)
  1. RIBAVIRIN [Suspect]
     Indication: HEPATITIS C
     Route: 065
  2. PEGASYS [Suspect]
     Route: 065
  3. PEGASYS [Suspect]
     Indication: HEPATITIS C
     Route: 065
  4. ESSENTIALE FORTE [Concomitant]
     Route: 048

REACTIONS (7)
  - DRUG INEFFECTIVE [None]
  - HAEMANGIOMA OF LIVER [None]
  - HYPERHIDROSIS [None]
  - HAEMANGIOMA [None]
  - DEPRESSION [None]
  - ASTHENIA [None]
  - FATIGUE [None]
